FAERS Safety Report 19516208 (Version 1)
Quarter: 2021Q3

REPORT INFORMATION
  Report Type: Spontaneous
  Country: US (occurrence: US)
  Receive Date: 20210709
  Receipt Date: 20210709
  Transmission Date: 20211014
  Serious: No
  Sender: FDA-Public Use
  Company Number: US-ASTELLAS-2020US041551

PATIENT
  Age: 76 Year
  Sex: Male

DRUGS (1)
  1. MYRBETRIQ [Suspect]
     Active Substance: MIRABEGRON
     Indication: NOCTURIA
     Dosage: 25 MG, ONCE DAILY (TAKEN COUPLE OF YEARS AGO)
     Route: 065

REACTIONS (2)
  - Product use in unapproved indication [Unknown]
  - Benign prostatic hyperplasia [Unknown]
